FAERS Safety Report 9668845 (Version 2)
Quarter: 2013Q4

REPORT INFORMATION
  Report Type: Spontaneous
  Country: US (occurrence: JP)
  Receive Date: 20131105
  Receipt Date: 20131105
  Transmission Date: 20140711
  Serious: Yes (Other)
  Sender: FDA-Public Use
  Company Number: 2013SP007553

PATIENT
  Age: 41 Year
  Sex: Female

DRUGS (3)
  1. EPIRUBICIN [Suspect]
     Indication: ENDOMETRIAL STROMAL SARCOMA
  2. CISPLATIN [Suspect]
     Indication: ENDOMETRIAL STROMAL SARCOMA
  3. IFOSFAMIDE [Suspect]
     Indication: ENDOMETRIAL STROMAL SARCOMA

REACTIONS (1)
  - Renal impairment [Unknown]
